FAERS Safety Report 17930515 (Version 5)
Quarter: 2021Q1

REPORT INFORMATION
  Report Type: Spontaneous
  Country: PT (occurrence: PT)
  Receive Date: 20200623
  Receipt Date: 20210114
  Transmission Date: 20210419
  Serious: Yes (Other)
  Sender: FDA-Public Use
  Company Number: PT-MYLANLABS-2020M1054571

PATIENT
  Age: 72 Year
  Sex: Female

DRUGS (1)
  1. METFORMIN [Suspect]
     Active Substance: METFORMIN HYDROCHLORIDE
     Indication: TYPE 2 DIABETES MELLITUS
     Dosage: UNK
     Route: 048

REACTIONS (6)
  - Vitamin B12 deficiency [Recovered/Resolved]
  - Anaemia megaloblastic [Recovered/Resolved]
  - Colon neoplasm [Unknown]
  - Fatigue [Unknown]
  - Anaemia macrocytic [Unknown]
  - Anaemia vitamin B12 deficiency [Recovered/Resolved]

NARRATIVE: CASE EVENT DATE: 2010
